FAERS Safety Report 8761180 (Version 1)
Quarter: 2012Q4

REPORT INFORMATION
  Report Type: 
  Country: US (occurrence: US)
  Receive Date: 20120830
  Receipt Date: 20120830
  Transmission Date: 20130627
  Serious: Yes (Hospitalization)
  Sender: FDA-Public Use
  Company Number: PHEH2012US016817

PATIENT
  Sex: Female

DRUGS (1)
  1. TOBI [Suspect]

REACTIONS (2)
  - Cystic fibrosis lung [Unknown]
  - Condition aggravated [Unknown]
